FAERS Safety Report 12981307 (Version 1)
Quarter: 2016Q4

REPORT INFORMATION
  Report Type: Report from Study
  Country: None (occurrence: CO)
  Receive Date: 20161129
  Receipt Date: 20161129
  Transmission Date: 20170207
  Serious: Yes (Other)
  Sender: FDA-Public Use
  Company Number: CO-ABBVIE-16K-036-1792918-00

PATIENT
  Age: 43 Year
  Sex: Female
  Weight: 52 kg

DRUGS (2)
  1. HUMIRA [Suspect]
     Active Substance: ADALIMUMAB
     Indication: RHEUMATOID ARTHRITIS
     Route: 058
     Dates: start: 20110923, end: 20161031
  2. LEFLUNOMIDE. [Concomitant]
     Active Substance: LEFLUNOMIDE
     Indication: PRODUCT USED FOR UNKNOWN INDICATION

REACTIONS (3)
  - Post procedural complication [Recovering/Resolving]
  - Lipoma [Recovering/Resolving]
  - Joint effusion [Recovering/Resolving]

NARRATIVE: CASE EVENT DATE: 20160809
